FAERS Safety Report 10075661 (Version 1)
Quarter: 2014Q2

REPORT INFORMATION
  Report Type: Spontaneous
  Country: MX (occurrence: MX)
  Receive Date: 20140414
  Receipt Date: 20140414
  Transmission Date: 20141212
  Serious: Yes (Other)
  Sender: FDA-Public Use
  Company Number: MX-JNJFOC-20140408663

PATIENT
  Age: 59 Year
  Sex: Male

DRUGS (3)
  1. PALEXIA [Suspect]
     Indication: CANCER PAIN
     Route: 048
  2. PALEXIA [Suspect]
     Indication: CANCER PAIN
     Route: 048
  3. PARACETAMOL [Concomitant]
     Indication: PRODUCT USED FOR UNKNOWN INDICATION
     Route: 065

REACTIONS (2)
  - Gastrointestinal haemorrhage [Unknown]
  - Portal vein pressure increased [Recovered/Resolved]
